FAERS Safety Report 4615359-X (Version None)
Quarter: 2005Q1

REPORT INFORMATION
  Report Type: 
  Country: None (occurrence: None)
  Receive Date: 20050317
  Receipt Date: 20050308
  Transmission Date: 20050727
  Serious: Yes (Other)
  Sender: FDA-Public Use
  Company Number: 2005-03-0080

PATIENT
  Age: 68 Year
  Sex: Male
  Weight: 68 kg

DRUGS (8)
  1. PEG-INTRON         (PEGINTERFERON ALFA-2B) [Suspect]
     Indication: HEPATITIS C
     Dosage: 100-60MCG QW SUBCATANEO
     Route: 058
     Dates: start: 20050115, end: 20050219
  2. REBETOL [Suspect]
     Indication: HEPATITIS C
     Dosage: 800-600 MG* ORAL
     Route: 048
     Dates: start: 20050115, end: 20050225
  3. BLOPRESS         (CANDESARTAN CILEXETIL) [Concomitant]
  4. ISOSORBIDE MONONITRATE [Concomitant]
  5. DOGMATYL TABLETS [Concomitant]
  6. GLYCYRON TABLETS [Concomitant]
  7. CLARITIN [Concomitant]
  8. CELESTAMINE TAB [Concomitant]

REACTIONS (7)
  - BRAIN OEDEMA [None]
  - CEREBRAL HAEMORRHAGE [None]
  - DEPRESSIVE SYMPTOM [None]
  - HEMIPLEGIA [None]
  - HYPOAESTHESIA [None]
  - IRRITABILITY [None]
  - PLATELET COUNT DECREASED [None]
